FAERS Safety Report 9801664 (Version 1)
Quarter: 2014Q1

REPORT INFORMATION
  Report Type: Spontaneous
  Country: US (occurrence: US)
  Receive Date: 20140107
  Receipt Date: 20140107
  Transmission Date: 20141002
  Serious: Yes (Hospitalization)
  Sender: FDA-Public Use
  Company Number: PHHY2013US154651

PATIENT
  Age: 63 Year
  Sex: Male

DRUGS (1)
  1. METFORMIN [Suspect]
     Indication: TYPE 2 DIABETES MELLITUS
     Dosage: 1000 MG, BID

REACTIONS (12)
  - Blood glucose decreased [Unknown]
  - Renal failure acute [Unknown]
  - Blood creatinine increased [Unknown]
  - White blood cell count increased [Unknown]
  - Haemodynamic instability [Unknown]
  - Lactic acidosis [Recovered/Resolved]
  - Abdominal pain [Unknown]
  - Blood lactic acid increased [Unknown]
  - Blood bicarbonate decreased [Unknown]
  - Tachycardia [Unknown]
  - Hypotension [Unknown]
  - Hypothermia [Unknown]
